FAERS Safety Report 7293784-9 (Version None)
Quarter: 2011Q1

REPORT INFORMATION
  Report Type: 
  Country: None (occurrence: None)
  Receive Date: 20110202
  Receipt Date: 20110124
  Transmission Date: 20110831
  Serious: Yes (Hospitalization)
  Sender: FDA-Public Use
  Company Number: 7037979

PATIENT
  Age: 17 Year
  Sex: Female

DRUGS (1)
  1. EUTHYROX 125 MCG (LEVOTHYROXINE SODIUM)(LEVOTHYROXINE SODIUM) [Suspect]
     Indication: HYPOTHYROIDISM
     Dosage: (125 MCG, 1 IN 1 D) ORAL, 100 MCG (100 MCG, 1 IN 1. D) ORAL, ORAL
     Route: 048
     Dates: start: 20101001

REACTIONS (1)
  - MENORRHAGIA [None]
